FAERS Safety Report 24239148 (Version 1)
Quarter: 2024Q3

REPORT INFORMATION
  Report Type: Spontaneous
  Country: CA (occurrence: None)
  Receive Date: 20240822
  Receipt Date: 20240822
  Transmission Date: 20241017
  Serious: Yes (Other)
  Sender: ASTRAZENECA
  Company Number: 2024A188880

PATIENT
  Age: 33 Year
  Sex: Male

DRUGS (8)
  1. ROSUVASTATIN [Suspect]
     Active Substance: ROSUVASTATIN\ROSUVASTATIN CALCIUM
     Indication: Nephrotic syndrome
  2. ROSUVASTATIN [Suspect]
     Active Substance: ROSUVASTATIN\ROSUVASTATIN CALCIUM
     Indication: Glomerulonephritis minimal lesion
  3. RAMIPRIL [Suspect]
     Active Substance: RAMIPRIL
     Indication: Nephrotic syndrome
  4. RAMIPRIL [Suspect]
     Active Substance: RAMIPRIL
     Indication: Glomerulonephritis minimal lesion
  5. FUROSEMIDE [Suspect]
     Active Substance: FUROSEMIDE
     Indication: Nephrotic syndrome
  6. FUROSEMIDE [Suspect]
     Active Substance: FUROSEMIDE
     Indication: Glomerulonephritis minimal lesion
  7. PREDNISONE [Suspect]
     Active Substance: PREDNISONE
     Indication: Nephrotic syndrome
  8. PREDNISONE [Suspect]
     Active Substance: PREDNISONE
     Indication: Glomerulonephritis minimal lesion

REACTIONS (1)
  - Disease recurrence [Unknown]
